FAERS Safety Report 10169943 (Version 1)
Quarter: 2014Q2

REPORT INFORMATION
  Report Type: Spontaneous
  Country: CH (occurrence: CH)
  Receive Date: 20140513
  Receipt Date: 20140513
  Transmission Date: 20141212
  Serious: Yes (Life-Threatening)
  Sender: FDA-Public Use
  Company Number: PHHY2014CH057536

PATIENT
  Sex: Female
  Weight: 55 kg

DRUGS (17)
  1. ENALAPRIL [Suspect]
     Dosage: 2.5 MG, QD
     Route: 048
     Dates: end: 20140407
  2. DOCETAXEL [Suspect]
     Indication: BREAST CANCER
     Dosage: UNK UKN, UNK
     Dates: start: 20140328
  3. DOBUTAMINE [Suspect]
     Dosage: 150 UG /MIN, ONCE/SINGLE
     Route: 042
     Dates: start: 20140407, end: 20140407
  4. ERTAPENEM [Suspect]
     Dosage: 1 G, QD
     Route: 017
     Dates: start: 20140406
  5. LASIX [Suspect]
     Dosage: 3 MG, QD
     Route: 042
     Dates: start: 20140406
  6. ENDOXAN [Suspect]
     Indication: BREAST CANCER
     Dosage: UNK UKN, UNK
     Dates: start: 20140328
  7. FLUCONAZOL [Concomitant]
     Dosage: 400 MG, QD
     Dates: start: 20140403
  8. RANITIDINE [Concomitant]
     Dosage: 50 MG, TID
     Route: 042
     Dates: start: 20140404
  9. AUGMENTINE [Concomitant]
     Dosage: UNK UKN, UNK
     Dates: start: 20140405, end: 20140406
  10. AMIODARON HCL [Concomitant]
     Dosage: 1200 MG, QD
     Route: 042
     Dates: start: 20140405
  11. INDERAL [Concomitant]
     Dosage: 10 MG, TID
     Route: 048
     Dates: end: 20140406
  12. LAMOTRIGIN [Concomitant]
     Dosage: 100 MG, TID
     Route: 048
  13. TAZOBAC [Concomitant]
     Dosage: UNK UKN, UNK
     Route: 042
     Dates: start: 20140403, end: 20140404
  14. VANCOCIN [Concomitant]
     Dosage: UNK UKN, UNK
     Route: 042
     Dates: start: 20140403, end: 20140404
  15. AZTREONAM [Concomitant]
     Dosage: UNK UKN, UNK
     Dates: start: 20140404, end: 20140404
  16. METRONIDAZOLE [Concomitant]
     Dosage: UNK UKN, UNK
     Dates: start: 20140404, end: 20140404
  17. MEROPENEM [Concomitant]
     Dosage: UNK UKN, UNK
     Dates: start: 20140404, end: 20140405

REACTIONS (5)
  - Coma [Recovering/Resolving]
  - Clonus [Recovered/Resolved]
  - Septic shock [Recovered/Resolved]
  - Agranulocytosis [Recovered/Resolved]
  - Hypotension [Recovered/Resolved]
